FAERS Safety Report 9292811 (Version 1)
Quarter: 2013Q2

REPORT INFORMATION
  Report Type: Spontaneous
  Country: US (occurrence: None)
  Receive Date: 20130515
  Receipt Date: 20130515
  Transmission Date: 20140414
  Serious: No
  Sender: FDA-Public Use
  Company Number: None

PATIENT
  Age: 58 Year
  Sex: Female
  Weight: 52.16 kg

DRUGS (1)
  1. HYDROCODONE-ACETAMINOPHEN [Suspect]
     Indication: KNEE OPERATION
     Dosage: 1-2 TABS 4-6 HRS

REACTIONS (4)
  - Pruritus [None]
  - Nausea [None]
  - Sleep disorder [None]
  - Headache [None]
